FAERS Safety Report 5502448-0 (Version None)
Quarter: 2007Q4

REPORT INFORMATION
  Report Type: 
  Country: None (occurrence: None)
  Receive Date: 20071030
  Receipt Date: 20071022
  Transmission Date: 20080405
  Serious: Yes (Disabling, Other)
  Sender: FDA-Public Use
  Company Number: JP-PFIZER INC-2007076057

PATIENT
  Age: 56 Year
  Sex: Male

DRUGS (4)
  1. ZOLOFT [Suspect]
     Indication: DEPRESSION
     Route: 048
     Dates: start: 20070515, end: 20070710
  2. ZOLOFT [Suspect]
  3. PAXIL [Suspect]
     Indication: DEPRESSION
     Route: 048
     Dates: start: 20070417, end: 20070515
  4. ARTANE [Concomitant]
     Dosage: DAILY DOSE:6MG

REACTIONS (2)
  - CHOLECYSTITIS [None]
  - DYSKINESIA [None]
